FAERS Safety Report 6361096-3 (Version None)
Quarter: 2009Q3

REPORT INFORMATION
  Report Type: 
  Country: None (occurrence: None)
  Receive Date: 20090918
  Receipt Date: 20090909
  Transmission Date: 20100115
  Serious: Yes (Death, Hospitalization, Other)
  Sender: FDA-Public Use
  Company Number: TR-BAYER-200931872GPV

PATIENT
  Age: 67 Year
  Sex: Male

DRUGS (5)
  1. ECOPRIN [Suspect]
     Indication: DRUG USE FOR UNKNOWN INDICATION
     Dosage: POSTOPERATIVE TREATMENT
  2. ENDOL [Suspect]
     Indication: DRUG USE FOR UNKNOWN INDICATION
     Dosage: POSTOPERATIVE TREATMENT
  3. COVERSYL [Suspect]
     Indication: DRUG USE FOR UNKNOWN INDICATION
     Dosage: POSTOPERATIVE TREATMENT
  4. CORDARONE [Suspect]
     Indication: DRUG USE FOR UNKNOWN INDICATION
     Dosage: POSTOPERATIVE TREATMENT
  5. LASIX [Suspect]
     Indication: DRUG USE FOR UNKNOWN INDICATION
     Dosage: POSTOPERATIVE TREATMENT

REACTIONS (8)
  - ACIDOSIS [None]
  - BRADYCARDIA [None]
  - DERMATITIS BULLOUS [None]
  - HYPOTENSION [None]
  - PYREXIA [None]
  - RESPIRATORY DISTRESS [None]
  - SEPTIC SHOCK [None]
  - TOXIC EPIDERMAL NECROLYSIS [None]
